FAERS Safety Report 5765666-2 (Version None)
Quarter: 2008Q2

REPORT INFORMATION
  Report Type: 
  Country: None (occurrence: None)
  Receive Date: 20080606
  Receipt Date: 20080529
  Transmission Date: 20081010
  Serious: Yes (Other)
  Sender: FDA-Public Use
  Company Number: 163-20785-08051692

PATIENT

DRUGS (3)
  1. THALOMID [Suspect]
     Indication: RENAL CANCER METASTATIC
     Dosage: QHS DAYS 1-7, ORAL, QHS FROM DAY 8, ORAL
     Route: 048
  2. INTERFERON ALFA (INTERFERON ALFA) [Suspect]
     Indication: RENAL CANCER METASTATIC
     Dosage: 1 MIU, BID, SUBCUTANEOUS
     Route: 058
  3. CAPECITABINE (CAPECITABINE) [Suspect]
     Indication: RENAL CANCER METASTATIC
     Dosage: DAILY X2 WEEKS, 1 WEEK OFF, ORAL
     Route: 048

REACTIONS (10)
  - ANAEMIA [None]
  - CONSTIPATION [None]
  - DEEP VEIN THROMBOSIS [None]
  - DRUG TOXICITY [None]
  - FATIGUE [None]
  - MUSCULOSKELETAL PAIN [None]
  - NEUTROPENIA [None]
  - PALMAR-PLANTAR ERYTHRODYSAESTHESIA SYNDROME [None]
  - PARAESTHESIA [None]
  - THROMBOCYTOPENIA [None]
